FAERS Safety Report 15565289 (Version 4)
Quarter: 2019Q4

REPORT INFORMATION
  Report Type: Report from Study
  Country: CA (occurrence: CA)
  Receive Date: 20181030
  Receipt Date: 20191108
  Transmission Date: 20200122
  Serious: Yes (Other)
  Sender: FDA-Public Use
  Company Number: CA-ROCHE-2205468

PATIENT
  Age: 67 Year
  Sex: Female
  Weight: 80.5 kg

DRUGS (11)
  1. TACROLIMUS. [Suspect]
     Active Substance: TACROLIMUS
     Indication: PRODUCT USED FOR UNKNOWN INDICATION
     Route: 048
  2. CIPRALEX [Concomitant]
     Active Substance: ESCITALOPRAM OXALATE
     Route: 048
  3. BENADRYL [Concomitant]
     Active Substance: DIPHENHYDRAMINE HYDROCHLORIDE
     Indication: PREMEDICATION
     Route: 048
     Dates: start: 20181107
  4. CELLCEPT [Suspect]
     Active Substance: MYCOPHENOLATE MOFETIL\MYCOPHENOLATE MOFETIL HYDROCHLORIDE
     Indication: MYASTHENIA GRAVIS
     Route: 048
  5. RITUXAN [Suspect]
     Active Substance: RITUXIMAB
     Indication: MYASTHENIA GRAVIS
     Dosage: FIRST DOSE 24/OCT/2018
     Route: 042
  6. TACROLIMUS. [Suspect]
     Active Substance: TACROLIMUS
     Route: 065
  7. TYLENOL [Concomitant]
     Active Substance: ACETAMINOPHEN
     Indication: PREMEDICATION
     Route: 048
     Dates: start: 20181107
  8. RITUXAN [Suspect]
     Active Substance: RITUXIMAB
     Dosage: 07/NOV/2018
     Route: 042
  9. TRAVATAN [Concomitant]
     Active Substance: TRAVOPROST
  10. TRAVATAN [Concomitant]
     Active Substance: TRAVOPROST
     Indication: GLAUCOMA
  11. SOLU-MEDROL [Concomitant]
     Active Substance: METHYLPREDNISOLONE SODIUM SUCCINATE
     Indication: PREMEDICATION
     Route: 042
     Dates: start: 20181107

REACTIONS (25)
  - Neutrophil count decreased [Unknown]
  - Stress [Unknown]
  - Muscular weakness [Not Recovered/Not Resolved]
  - Myasthenia gravis [Unknown]
  - Blood albumin decreased [Unknown]
  - Blood sodium increased [Unknown]
  - Change of bowel habit [Unknown]
  - Off label use [Unknown]
  - Fall [Unknown]
  - Gamma-glutamyltransferase decreased [Unknown]
  - Anxiety [Not Recovered/Not Resolved]
  - Strabismus [Not Recovered/Not Resolved]
  - Haemoglobin decreased [Unknown]
  - Renal failure [Unknown]
  - Weight increased [Unknown]
  - Muscular weakness [Unknown]
  - Blood chloride increased [Unknown]
  - Infusion related reaction [Recovered/Resolved]
  - Blood pressure systolic increased [Unknown]
  - Abdominal pain [Not Recovered/Not Resolved]
  - Intentional product use issue [Unknown]
  - Red blood cell count decreased [Unknown]
  - Blood pressure systolic abnormal [Unknown]
  - Vision blurred [Not Recovered/Not Resolved]
  - Eyelid ptosis [Recovering/Resolving]

NARRATIVE: CASE EVENT DATE: 20181016
